FAERS Safety Report 8181509-4 (Version None)
Quarter: 2012Q1

REPORT INFORMATION
  Report Type: 
  Country: None (occurrence: None)
  Receive Date: 20120302
  Receipt Date: 20120228
  Transmission Date: 20120608
  Serious: Yes (Death, Other)
  Sender: FDA-Public Use
  Company Number: CN-PFIZER INC-2012052916

PATIENT
  Age: 57 Year
  Sex: Female

DRUGS (1)
  1. SUTENT [Suspect]
     Indication: RENAL CELL CARCINOMA
     Dosage: 50 MG, 1X/DAY
     Route: 048

REACTIONS (6)
  - RENAL CELL CARCINOMA [None]
  - DISEASE PROGRESSION [None]
  - BONE MARROW FAILURE [None]
  - PNEUMONIA [None]
  - TOXIC SHOCK SYNDROME [None]
  - NEOPLASM PROGRESSION [None]
